FAERS Safety Report 6277939-8 (Version None)
Quarter: 2009Q3

REPORT INFORMATION
  Report Type: 
  Country: None (occurrence: None)
  Receive Date: 20090720
  Receipt Date: 20090709
  Transmission Date: 20100115
  Serious: Yes (Other)
  Sender: FDA-Public Use
  Company Number: ADR6712009 (ARROW LOG NO: 2008AG0164)

PATIENT
  Sex: Female

DRUGS (1)
  1. SERTRALINE [Suspect]

REACTIONS (10)
  - CHEST PAIN [None]
  - COLD SWEAT [None]
  - DROOLING [None]
  - DYSMENORRHOEA [None]
  - EYE PAIN [None]
  - FATIGUE [None]
  - INSOMNIA [None]
  - LOSS OF CONSCIOUSNESS [None]
  - MIGRAINE [None]
  - VISUAL ACUITY REDUCED [None]
